FAERS Safety Report 24552778 (Version 1)
Quarter: 2024Q4

REPORT INFORMATION
  Report Type: Spontaneous
  Country: US (occurrence: US)
  Receive Date: 20241027
  Receipt Date: 20241027
  Transmission Date: 20250114
  Serious: Yes (Other)
  Sender: ALEXION PHARMACEUTICALS
  Company Number: US-AstraZeneca-CH-00709422A

PATIENT
  Weight: 60.5 kg

DRUGS (4)
  1. KOSELUGO [Suspect]
     Active Substance: SELUMETINIB
     Dosage: 45 MILLIGRAM, QD
  2. KOSELUGO [Suspect]
     Active Substance: SELUMETINIB
     Dosage: 45 MILLIGRAM, QD
  3. KOSELUGO [Suspect]
     Active Substance: SELUMETINIB
     Dosage: 45 MILLIGRAM, QD
  4. KOSELUGO [Suspect]
     Active Substance: SELUMETINIB
     Dosage: 45 MILLIGRAM, QD

REACTIONS (3)
  - Abortion spontaneous [Unknown]
  - Vaginal haemorrhage [Recovered/Resolved]
  - Exposure during pregnancy [Unknown]
